FAERS Safety Report 25894145 (Version 1)
Quarter: 2025Q4

REPORT INFORMATION
  Report Type: Spontaneous
  Country: EU (occurrence: EU)
  Receive Date: 20251008
  Receipt Date: 20251008
  Transmission Date: 20260118
  Serious: Yes (Other)
  Sender: ACCORD
  Company Number: None

PATIENT
  Age: 68 Year
  Sex: Female
  Weight: 63 kg

DRUGS (8)
  1. CARBOPLATIN [Suspect]
     Active Substance: CARBOPLATIN
     Indication: Endometrial cancer
     Dosage: STRENGTH: 10 MG/ML, SOLUTION FOR INFUSION, C1D1 AUC5 OR 400 MG
     Dates: start: 20250604, end: 20250604
  2. PACLITAXEL [Suspect]
     Active Substance: PACLITAXEL
     Indication: Endometrial cancer
     Dosage: 6 MG/ML, CONCENTRATE FOR SOLUTION FOR INFUSION, C1J1 175 MG/M SQ. SOIT 312 MG
     Dates: start: 20250604, end: 20250604
  3. DOSTARLIMAB [Suspect]
     Active Substance: DOSTARLIMAB
     Indication: Endometrial cancer
     Dosage: C1J1, STRENGTH: 500 MG CONCENTRATE FOR SOLUTION FOR INFUSION
     Dates: start: 20250604, end: 20250604
  4. ELIQUIS [Concomitant]
     Active Substance: APIXABAN
  5. FLECAINIDE [Concomitant]
     Active Substance: FLECAINIDE
  6. EXFORGE [Concomitant]
     Active Substance: AMLODIPINE BESYLATE\VALSARTAN
  7. CHOLECALCIFEROL [Concomitant]
     Active Substance: CHOLECALCIFEROL
  8. DOLIPRANE [Concomitant]
     Active Substance: ACETAMINOPHEN

REACTIONS (1)
  - Toxic skin eruption [Recovered/Resolved with Sequelae]

NARRATIVE: CASE EVENT DATE: 20250612
